FAERS Safety Report 6963506-7 (Version None)
Quarter: 2010Q3

REPORT INFORMATION
  Report Type: 
  Country: None (occurrence: None)
  Receive Date: 20100902
  Receipt Date: 20100825
  Transmission Date: 20110219
  Serious: Yes (Hospitalization)
  Sender: FDA-Public Use
  Company Number: US-US-EMD SERONO, INC.-7004154

PATIENT
  Sex: Male
  Weight: 100 kg

DRUGS (6)
  1. REBIF [Suspect]
     Indication: MULTIPLE SCLEROSIS
     Route: 058
     Dates: start: 20091001
  2. ZOCOR [Concomitant]
     Indication: BLOOD CHOLESTEROL INCREASED
  3. LISINOPRIL [Concomitant]
     Indication: HYPERTENSION
  4. ASPIRIN [Concomitant]
     Indication: CEREBROVASCULAR ACCIDENT
     Dates: start: 20020101
  5. ANDRODERM [Concomitant]
     Indication: TESTIS CANCER
     Route: 062
     Dates: start: 19920101
  6. UNSPECIFIED DEPRESSION TREATMENT [Concomitant]
     Indication: DEPRESSION

REACTIONS (11)
  - ANXIETY [None]
  - BACK PAIN [None]
  - DEPRESSION [None]
  - HYPERTHYROIDISM [None]
  - HYPOTHYROIDISM [None]
  - MULTIPLE SCLEROSIS RELAPSE [None]
  - MUSCULAR WEAKNESS [None]
  - MUSCULOSKELETAL STIFFNESS [None]
  - SELF-INJURIOUS IDEATION [None]
  - THYROID DISORDER [None]
  - URINARY TRACT INFECTION [None]
